FAERS Safety Report 8113364-2 (Version None)
Quarter: 2012Q1

REPORT INFORMATION
  Report Type: 
  Country: None (occurrence: None)
  Receive Date: 20120203
  Receipt Date: 20120131
  Transmission Date: 20120608
  Serious: Yes (Hospitalization)
  Sender: FDA-Public Use
  Company Number: PHHO2010CN02034

PATIENT
  Sex: Male
  Weight: 90 kg

DRUGS (6)
  1. BLINDED ALISKIREN [Suspect]
     Dosage: DOUBLE BLIND
     Route: 048
     Dates: start: 20100208
  2. ENALAPRIL MALEATE [Suspect]
     Dosage: DOUBLE BLIND
     Route: 048
     Dates: start: 20100208
  3. BLINDED NO TREATMENT RECEIVED [Suspect]
     Dosage: DOUBLE BLINDED
     Route: 048
     Dates: start: 20100107, end: 20100203
  4. ENALAPRIL MALEATE [Suspect]
     Dosage: DOUBLE BLINDED
     Route: 048
     Dates: start: 20100107, end: 20100203
  5. BLINDED ALISKIREN [Suspect]
     Dosage: DOUBLE BLINDED
     Route: 048
     Dates: start: 20100107, end: 20100203
  6. BLINDED NO TREATMENT RECEIVED [Suspect]
     Dosage: DOUBLE BLIND
     Route: 048
     Dates: start: 20100208

REACTIONS (7)
  - NASOPHARYNGITIS [None]
  - CORONARY ARTERY DISEASE [None]
  - COUGH [None]
  - NOCTURNAL DYSPNOEA [None]
  - CARDIAC FAILURE [None]
  - LUNG INFECTION [None]
  - HYPERTENSION [None]
